FAERS Safety Report 21611535 (Version 8)
Quarter: 2023Q2

REPORT INFORMATION
  Report Type: Spontaneous
  Country: CA (occurrence: CA)
  Receive Date: 20221117
  Receipt Date: 20230609
  Transmission Date: 20230722
  Serious: Yes (Other)
  Sender: FDA-Public Use
  Company Number: CA-CELLTRION INC.-2020CA033245

PATIENT

DRUGS (34)
  1. INFLECTRA [Suspect]
     Active Substance: INFLIXIMAB-DYYB
     Indication: Crohn^s disease
     Dosage: 430 MG AT WEEK 0, 2, 6 AND THEN EVERY 8 WEEKS
     Route: 042
     Dates: start: 20201112, end: 20201112
  2. INFLECTRA [Suspect]
     Active Substance: INFLIXIMAB-DYYB
     Dosage: 430 MG AT WEEK 0, 2, 6 AND THEN EVERY 8 WEEKS
     Route: 042
     Dates: start: 20201112, end: 20210414
  3. INFLECTRA [Suspect]
     Active Substance: INFLIXIMAB-DYYB
     Dosage: 430 MG AT WEEK 0, 2, 6 AND THEN EVERY 8 WEEKS
     Route: 041
     Dates: start: 20201112
  4. INFLECTRA [Suspect]
     Active Substance: INFLIXIMAB-DYYB
     Dosage: 430 MG AT WEEK 0, 2, 6 AND THEN EVERY 8 WEEKS
     Route: 042
     Dates: start: 20201125
  5. INFLECTRA [Suspect]
     Active Substance: INFLIXIMAB-DYYB
     Dosage: 430 MG AT WEEK 0, 2, 6 AND THEN EVERY 8 WEEKS
     Route: 042
     Dates: start: 20201223
  6. INFLECTRA [Suspect]
     Active Substance: INFLIXIMAB-DYYB
     Dosage: 430 MG AT WEEK 0, 2, 6 AND THEN EVERY 8 WEEKS
     Route: 042
     Dates: start: 20210217
  7. INFLECTRA [Suspect]
     Active Substance: INFLIXIMAB-DYYB
     Dosage: 430 MG AT WEEK 0, 2, 6 AND THEN EVERY 8 WEEKS
     Route: 042
     Dates: start: 20210414
  8. INFLECTRA [Suspect]
     Active Substance: INFLIXIMAB-DYYB
     Dosage: 7.5 MG/KG EVERY 6 WEEKS(1DF)
     Route: 042
     Dates: start: 20210609
  9. INFLECTRA [Suspect]
     Active Substance: INFLIXIMAB-DYYB
     Dosage: 7.5 MG/KG EVERY 6 WEEKS
     Route: 042
     Dates: start: 20210721
  10. INFLECTRA [Suspect]
     Active Substance: INFLIXIMAB-DYYB
     Dosage: 7.5 MG/KG EVERY 6 WEEKS
     Route: 042
     Dates: start: 20210901
  11. INFLECTRA [Suspect]
     Active Substance: INFLIXIMAB-DYYB
     Dosage: 7.5 MG/KG EVERY 6 WEEKS
     Route: 042
     Dates: start: 20211013
  12. INFLECTRA [Suspect]
     Active Substance: INFLIXIMAB-DYYB
     Dosage: 7.5 MG/KG EVERY 6 WEEKS
     Route: 042
     Dates: start: 20211124
  13. INFLECTRA [Suspect]
     Active Substance: INFLIXIMAB-DYYB
     Dosage: 7.5 MG/KG EVERY 6 WEEKS
     Route: 042
     Dates: start: 20220105
  14. INFLECTRA [Suspect]
     Active Substance: INFLIXIMAB-DYYB
     Dosage: 7.5 MG/KG EVERY 6 WEEKS
     Route: 042
     Dates: start: 20220216
  15. INFLECTRA [Suspect]
     Active Substance: INFLIXIMAB-DYYB
     Dosage: 7.5 MG/KG EVERY 6 WEEKS
     Route: 042
     Dates: start: 20220216
  16. INFLECTRA [Suspect]
     Active Substance: INFLIXIMAB-DYYB
     Dosage: 783 MG, PATIENT IS SUPPOSED TO RECEIVE 7.5 MG/KG
     Route: 042
     Dates: start: 20220330
  17. INFLECTRA [Suspect]
     Active Substance: INFLIXIMAB-DYYB
     Dosage: 728 MG
     Route: 042
     Dates: start: 20220512
  18. INFLECTRA [Suspect]
     Active Substance: INFLIXIMAB-DYYB
     Dosage: 7.5 MG/KG(7500UG/KG), EVERY 6WEEKS
     Route: 042
     Dates: start: 20220622
  19. INFLECTRA [Suspect]
     Active Substance: INFLIXIMAB-DYYB
     Dosage: 7.5 MG/KG(7500UG/KG), EVERY 6WEEKS
     Route: 042
     Dates: start: 20220622
  20. INFLECTRA [Suspect]
     Active Substance: INFLIXIMAB-DYYB
     Dosage: 7.5 MG/KG(7500UG/KG), EVERY 6WEEKS
     Route: 042
     Dates: start: 20220810
  21. INFLECTRA [Suspect]
     Active Substance: INFLIXIMAB-DYYB
     Dosage: 7.5 MG/KG(7500UG/KG), EVERY 6 WEEKS
     Route: 042
     Dates: start: 20220921
  22. INFLECTRA [Suspect]
     Active Substance: INFLIXIMAB-DYYB
     Dosage: 745 MG (SUPPOSED TO RECEIVE 7.5 MG/KG), EVERY 6 WEEKS
     Route: 042
     Dates: start: 20221103
  23. INFLECTRA [Suspect]
     Active Substance: INFLIXIMAB-DYYB
     Dosage: 7.5 MG/KG(7500UG/KG), EVERY 6 WEEKS
     Route: 042
     Dates: start: 20221228
  24. INFLECTRA [Suspect]
     Active Substance: INFLIXIMAB-DYYB
     Dosage: 7.5 MG/KG(7500UG/KG), EVERY 6 WEEKS
     Route: 042
     Dates: start: 20221228
  25. INFLECTRA [Suspect]
     Active Substance: INFLIXIMAB-DYYB
     Dosage: 7.5 MG/KG(773 MG), EVERY 6 WEEKS
     Route: 042
     Dates: start: 20230215
  26. INFLECTRA [Suspect]
     Active Substance: INFLIXIMAB-DYYB
     Dosage: 770 MG (7.5MG/KG), Q6 WEEKS
     Route: 042
     Dates: start: 20230329
  27. INFLECTRA [Suspect]
     Active Substance: INFLIXIMAB-DYYB
     Dosage: 750 MG (7.5 MG/KG) EVERY 6 WEEKS
     Route: 042
     Dates: start: 20230511
  28. AZATHIOPRINE [Concomitant]
     Active Substance: AZATHIOPRINE
     Dosage: UNK
     Route: 065
  29. AZATHIOPRINE [Concomitant]
     Active Substance: AZATHIOPRINE
     Dosage: 1 DF
     Dates: start: 2015
  30. FOLIC ACID [Concomitant]
     Active Substance: FOLIC ACID
     Dosage: 1 DF
     Route: 065
  31. IRON [Concomitant]
     Active Substance: IRON
     Dosage: 1 DF
     Route: 065
  32. MINERALS\VITAMINS [Concomitant]
     Active Substance: MINERALS\VITAMINS
     Dosage: 1 DF
  33. PANTOPRAZOLE SODIUM [Concomitant]
     Active Substance: PANTOPRAZOLE SODIUM
     Dosage: 1 DF
     Route: 065
  34. VITAMIN D [Concomitant]
     Active Substance: VITAMIN D NOS
     Dosage: 1 DF

REACTIONS (20)
  - Abortion spontaneous [Unknown]
  - Ectopic pregnancy [Recovered/Resolved]
  - Abdominal pain [Recovering/Resolving]
  - Maternal exposure during pregnancy [Unknown]
  - Off label use [Unknown]
  - Off label use [Unknown]
  - Off label use [Unknown]
  - Intentional product use issue [Unknown]
  - Inappropriate schedule of product administration [Unknown]
  - In vitro fertilisation [Unknown]
  - Body temperature decreased [Not Recovered/Not Resolved]
  - Blood pressure increased [Not Recovered/Not Resolved]
  - Decreased appetite [Recovering/Resolving]
  - Arthralgia [Not Recovered/Not Resolved]
  - Condition aggravated [Recovered/Resolved]
  - Back pain [Not Recovered/Not Resolved]
  - Ligament sprain [Not Recovered/Not Resolved]
  - Vomiting [Recovering/Resolving]
  - Gastrointestinal disorder [Recovering/Resolving]
  - Ear infection [Recovered/Resolved]

NARRATIVE: CASE EVENT DATE: 20201125
